FAERS Safety Report 7280884-2 (Version None)
Quarter: 2011Q1

REPORT INFORMATION
  Report Type: 
  Country: None (occurrence: None)
  Receive Date: 20110208
  Receipt Date: 20110201
  Transmission Date: 20110831
  Serious: Yes (Other)
  Sender: FDA-Public Use
  Company Number: CA-ABBOTT-11P-028-0702196-00

PATIENT
  Sex: Female
  Weight: 88.53 kg

DRUGS (5)
  1. SANDOZ-BISOPROLOL [Concomitant]
     Indication: HEART RATE IRREGULAR
     Dosage: 1.5 DAILY
     Dates: start: 20080101
  2. XALATAN [Concomitant]
     Indication: GLAUCOMA
     Dosage: 0.005%
     Route: 031
     Dates: start: 20090101
  3. COUMADIN [Concomitant]
     Indication: HEART RATE IRREGULAR
     Route: 048
     Dates: start: 20080101, end: 20110124
  4. HUMIRA [Suspect]
     Indication: PSORIASIS
     Route: 058
     Dates: start: 20100929
  5. DIVALPROEX [Concomitant]
     Indication: BIPOLAR DISORDER
     Route: 048
     Dates: start: 19860101

REACTIONS (3)
  - SKIN DISORDER [None]
  - POST PROCEDURAL COMPLICATION [None]
  - PAIN [None]
